FAERS Safety Report 8570461-5 (Version None)
Quarter: 2012Q3

REPORT INFORMATION
  Report Type: 
  Country: None (occurrence: None)
  Receive Date: 20120803
  Receipt Date: 20120725
  Transmission Date: 20120928
  Serious: Yes (Other)
  Sender: FDA-Public Use
  Company Number: US-ASTRAZENECA-2011SE45804

PATIENT
  Age: 74 Year
  Sex: Female
  Weight: 78 kg

DRUGS (16)
  1. NEXIUM [Suspect]
     Route: 048
     Dates: start: 20000101
  2. METOPROLOL TARTRATE [Concomitant]
     Indication: ORTHOSTATIC HYPERTENSION
  3. CALCIUM [Concomitant]
  4. QUESTRAN [Concomitant]
  5. FOLIC ACID [Concomitant]
  6. HYDRALAZINE HCL [Concomitant]
     Indication: ORTHOSTATIC HYPERTENSION
  7. MULTI-VITAMINS [Concomitant]
  8. MIDODRINE HYDROCHLORIDE [Concomitant]
     Indication: ORTHOSTATIC HYPERTENSION
  9. ASPIRIN [Concomitant]
  10. VITAMIN B-12 [Concomitant]
  11. VITAMIN D [Concomitant]
  12. ARIMIDEX [Suspect]
     Indication: BREAST CANCER
     Route: 048
  13. RAMIPRIL [Concomitant]
  14. TYLENOL (CAPLET) [Concomitant]
     Indication: PAIN
     Dosage: EVERY 6 HOURS
  15. ANTIVERT [Concomitant]
  16. NEXIUM [Suspect]
     Indication: GASTROOESOPHAGEAL REFLUX DISEASE
     Route: 048
     Dates: start: 20000101

REACTIONS (10)
  - RESTRICTIVE PULMONARY DISEASE [None]
  - FIBROMYALGIA [None]
  - PAIN [None]
  - BREAST CANCER FEMALE [None]
  - BRONCHIAL HYPERREACTIVITY [None]
  - CERVIX CARCINOMA [None]
  - ORTHOSTATIC HYPOTENSION [None]
  - WOUND [None]
  - DIARRHOEA [None]
  - MALAISE [None]
